FAERS Safety Report 19841860 (Version 1)
Quarter: 2021Q3

REPORT INFORMATION
  Report Type: Spontaneous
  Country: US (occurrence: US)
  Receive Date: 20210916
  Receipt Date: 20210916
  Transmission Date: 20211014
  Serious: No
  Sender: FDA-Public Use
  Company Number: US-ELI_LILLY_AND_COMPANY-US202108008576

PATIENT
  Age: 61 Year
  Sex: Female

DRUGS (2)
  1. HUMAN INSULIN (RDNA ORIGIN) 30REG70NPH [Suspect]
     Active Substance: INSULIN HUMAN
     Dosage: 20 U, EACH EVENING
     Route: 065
     Dates: start: 2018
  2. HUMAN INSULIN (RDNA ORIGIN) 30REG70NPH [Suspect]
     Active Substance: INSULIN HUMAN
     Indication: PRODUCT USED FOR UNKNOWN INDICATION
     Dosage: 20 U, EACH EVENING
     Route: 065
     Dates: start: 2018

REACTIONS (2)
  - Product dose omission issue [Unknown]
  - Blood glucose increased [Not Recovered/Not Resolved]

NARRATIVE: CASE EVENT DATE: 20210813
